FAERS Safety Report 12437812 (Version 1)
Quarter: 2016Q2

REPORT INFORMATION
  Report Type: Spontaneous
  Country: US (occurrence: US)
  Receive Date: 20160606
  Receipt Date: 20160606
  Transmission Date: 20160815
  Serious: Yes (Other)
  Sender: FDA-Public Use
  Company Number: US-TEVA-663623USA

PATIENT
  Age: 67 Year
  Sex: Female

DRUGS (13)
  1. VESICARE [Concomitant]
     Active Substance: SOLIFENACIN SUCCINATE
  2. BACLOFEN. [Concomitant]
     Active Substance: BACLOFEN
  3. OXYTROL [Concomitant]
     Active Substance: OXYBUTYNIN
  4. LAMCITAL [Concomitant]
  5. AMPYRA [Concomitant]
     Active Substance: DALFAMPRIDINE
  6. AMBIEN [Concomitant]
     Active Substance: ZOLPIDEM TARTRATE
  7. ELAVIL [Concomitant]
     Active Substance: AMITRIPTYLINE HYDROCHLORIDE
  8. COUMADIN [Concomitant]
     Active Substance: WARFARIN SODIUM
  9. LASIX [Concomitant]
     Active Substance: FUROSEMIDE
  10. PROVIGIL [Concomitant]
     Active Substance: MODAFINIL
  11. TYLENOL [Concomitant]
     Active Substance: ACETAMINOPHEN
  12. COPAXONE [Suspect]
     Active Substance: GLATIRAMER ACETATE
     Indication: MULTIPLE SCLEROSIS
     Route: 058
     Dates: start: 20160504, end: 20160525
  13. MULTIVITAMIN [Concomitant]
     Active Substance: VITAMINS

REACTIONS (1)
  - Multiple sclerosis relapse [Unknown]

NARRATIVE: CASE EVENT DATE: 201605
